FAERS Safety Report 17539455 (Version 4)
Quarter: 2020Q4

REPORT INFORMATION
  Report Type: Spontaneous
  Country: US (occurrence: US)
  Receive Date: 20200313
  Receipt Date: 20201221
  Transmission Date: 20210113
  Serious: No
  Sender: FDA-Public Use
  Company Number: US-PFIZER INC-2020109295

PATIENT
  Age: 62 Year
  Sex: Female
  Weight: 113.4 kg

DRUGS (2)
  1. LYRICA [Suspect]
     Active Substance: PREGABALIN
     Indication: NEURALGIA
     Dosage: 150 MG, 3X/DAY
     Route: 048
     Dates: start: 202001
  2. LYRICA [Suspect]
     Active Substance: PREGABALIN
     Indication: CHRONIC INFLAMMATORY DEMYELINATING POLYRADICULONEUROPATHY
     Dosage: 150 MG, 2X/DAY
     Route: 048

REACTIONS (4)
  - Feeling abnormal [Unknown]
  - Intentional product misuse [Unknown]
  - Expired product administered [Unknown]
  - Drug ineffective [Unknown]
